FAERS Safety Report 23185135 (Version 2)
Quarter: 2024Q1

REPORT INFORMATION
  Report Type: Report from Study
  Country: CN (occurrence: CN)
  Receive Date: 20231115
  Receipt Date: 20240101
  Transmission Date: 20240410
  Serious: Yes (Other)
  Sender: FDA-Public Use
  Company Number: CN-TAKEDA-2023TUS109423

PATIENT
  Age: 41 Year
  Sex: Male
  Weight: 49 kg

DRUGS (6)
  1. VEDOLIZUMAB [Suspect]
     Active Substance: VEDOLIZUMAB
     Indication: Colitis ulcerative
     Dosage: 300 MILLIGRAM
     Route: 042
     Dates: start: 20221028
  2. Live combined bacillus subtilis and enterococcus faecium [Concomitant]
     Indication: Dysbiosis
     Dosage: 500 MILLIGRAM, TID
     Route: 048
     Dates: start: 20221031
  3. MESALAMINE [Concomitant]
     Active Substance: MESALAMINE
     Indication: Inflammatory bowel disease
     Dosage: UNK UNK, 2/WEEK
     Dates: start: 20230202
  4. PREDNISONE ACETATE [Concomitant]
     Active Substance: PREDNISONE ACETATE
     Indication: Inflammatory bowel disease
     Dosage: UNK
     Dates: start: 20221026
  5. THROMBIN [Concomitant]
     Active Substance: THROMBIN
     Indication: Inflammatory bowel disease
     Dosage: UNK
     Dates: start: 20221027
  6. SUCRALFATE [Concomitant]
     Active Substance: SUCRALFATE
     Indication: Inflammatory bowel disease
     Dosage: UNK
     Dates: start: 20221027

REACTIONS (1)
  - Haematochezia [Not Recovered/Not Resolved]

NARRATIVE: CASE EVENT DATE: 20231108
